FAERS Safety Report 7471940-4 (Version None)
Quarter: 2011Q2

REPORT INFORMATION
  Report Type: 
  Country: None (occurrence: None)
  Receive Date: 20110511
  Receipt Date: 20100801
  Transmission Date: 20111010
  Serious: No
  Sender: FDA-Public Use
  Company Number: A0874053A

PATIENT
  Sex: Female

DRUGS (1)
  1. TYKERB [Suspect]
     Route: 048
     Dates: start: 20091201

REACTIONS (4)
  - NAIL DISORDER [None]
  - OEDEMA PERIPHERAL [None]
  - PAIN IN EXTREMITY [None]
  - ONYCHALGIA [None]
